FAERS Safety Report 6554774-4 (Version None)
Quarter: 2010Q1

REPORT INFORMATION
  Report Type: 
  Country: None (occurrence: None)
  Receive Date: 20100125
  Receipt Date: 20100119
  Transmission Date: 20100710
  Serious: Yes (Other)
  Sender: FDA-Public Use
  Company Number: SPV1-2010-00072

PATIENT
  Age: 18 Year
  Sex: Female

DRUGS (4)
  1. ADDERALL XR 10 [Suspect]
     Indication: DRUG USE FOR UNKNOWN INDICATION
     Dosage: 20 MG, 1X/DAY:QD, ORAL
     Route: 048
  2. DIFFERIN XP (ADAPALENE) [Concomitant]
  3. NINOCYCLINE (MINOCYCLINE) [Concomitant]
  4. VENLAFAXINE HCL [Concomitant]

REACTIONS (7)
  - ACTIVITIES OF DAILY LIVING IMPAIRED [None]
  - ASTHENIA [None]
  - DEPRESSED LEVEL OF CONSCIOUSNESS [None]
  - FATIGUE [None]
  - HYPERSOMNIA [None]
  - PALPITATIONS [None]
  - SENSATION OF HEAVINESS [None]
